FAERS Safety Report 17233554 (Version 1)
Quarter: 2020Q1

REPORT INFORMATION
  Report Type: Spontaneous
  Country: IL (occurrence: IL)
  Receive Date: 20200105
  Receipt Date: 20200105
  Transmission Date: 20200409
  Serious: Yes (Life-Threatening, Hospitalization)
  Sender: FDA-Public Use
  Company Number: IL-KNIGHT THERAPEUTICS (USA) INC.-2078514

PATIENT
  Age: 23 Year
  Sex: Male

DRUGS (2)
  1. IMPAVIDO [Suspect]
     Active Substance: MILTEFOSINE
     Indication: MUCOCUTANEOUS LEISHMANIASIS
     Route: 048
  2. DIPYRONE (METAMIZOLE) [Concomitant]
     Active Substance: METAMIZOLE

REACTIONS (4)
  - Pancytopenia [Recovering/Resolving]
  - Pyrexia [Recovering/Resolving]
  - Renal failure [Recovering/Resolving]
  - Vomiting [Recovering/Resolving]
